FAERS Safety Report 8059539-2 (Version None)
Quarter: 2012Q1

REPORT INFORMATION
  Report Type: 
  Country: None (occurrence: None)
  Receive Date: 20120120
  Receipt Date: 20120109
  Transmission Date: 20120608
  Serious: Yes (Other)
  Sender: FDA-Public Use
  Company Number: JP-TEVA-314350ISR

PATIENT
  Age: 18 Year

DRUGS (3)
  1. ETOPOSIDE [Suspect]
  2. CISPLATIN [Suspect]
  3. IFOSFAMIDE [Suspect]

REACTIONS (2)
  - PANCYTOPENIA [None]
  - HEARING IMPAIRED [None]
